FAERS Safety Report 5621966-8 (Version None)
Quarter: 2008Q1

REPORT INFORMATION
  Report Type: 
  Country: None (occurrence: None)
  Receive Date: 20080211
  Receipt Date: 20080205
  Transmission Date: 20080703
  Serious: Yes (Hospitalization)
  Sender: FDA-Public Use
  Company Number: B0505040A

PATIENT

DRUGS (1)
  1. FLUTICASONE PROPIONATE [Suspect]
     Route: 065

REACTIONS (3)
  - ERYTHEMA [None]
  - SKIN DISORDER [None]
  - STEVENS-JOHNSON SYNDROME [None]
